FAERS Safety Report 23933701 (Version 1)
Quarter: 2024Q2

REPORT INFORMATION
  Report Type: Spontaneous
  Country: US (occurrence: None)
  Receive Date: 20240602
  Receipt Date: 20240602
  Transmission Date: 20240716
  Serious: No
  Sender: FDA-Public Use
  Company Number: None

PATIENT
  Age: 72 Year
  Sex: Female
  Weight: 101.25 kg

DRUGS (14)
  1. RYBELSUS [Suspect]
     Active Substance: SEMAGLUTIDE
     Indication: Type 2 diabetes mellitus
     Dosage: 1 TABLET DAILY ORAL
     Route: 048
  2. ALBUTEROL [Concomitant]
     Active Substance: ALBUTEROL
  3. ATORVASTATIN [Concomitant]
     Active Substance: ATORVASTATIN
  4. CITALOPRAM [Concomitant]
     Active Substance: CITALOPRAM\CITALOPRAM HYDROBROMIDE
  5. ESTRADIOL [Concomitant]
     Active Substance: ESTRADIOL
  6. LEVOTHYROXINE [Concomitant]
     Active Substance: LEVOTHYROXINE\LEVOTHYROXINE SODIUM
  7. LISINOPRIL [Concomitant]
     Active Substance: LISINOPRIL
  8. JARDIANCE [Concomitant]
     Active Substance: EMPAGLIFLOZIN
  9. SUCRALFATE [Concomitant]
     Active Substance: SUCRALFATE
  10. TRAZODONE [Concomitant]
     Active Substance: TRAZODONE HYDROCHLORIDE
  11. One-A-Day women^s multivitamin [Concomitant]
  12. COLACE [Concomitant]
     Active Substance: DOCUSATE SODIUM
  13. LANSOPRAZOLE [Concomitant]
     Active Substance: LANSOPRAZOLE
  14. OZEMPIC [Suspect]
     Active Substance: SEMAGLUTIDE

REACTIONS (5)
  - Dyspepsia [None]
  - Nausea [None]
  - Throat irritation [None]
  - Insomnia [None]
  - Eructation [None]

NARRATIVE: CASE EVENT DATE: 20240523
